FAERS Safety Report 9560554 (Version 1)
Quarter: 2013Q3

REPORT INFORMATION
  Report Type: Spontaneous
  Country: US (occurrence: US)
  Receive Date: 20130927
  Receipt Date: 20130927
  Transmission Date: 20140515
  Serious: No
  Sender: FDA-Public Use
  Company Number: US-BIOGENIDEC-2013BI052217

PATIENT
  Age: 56 Year
  Sex: Female

DRUGS (4)
  1. TECFIDERA [Suspect]
     Indication: MULTIPLE SCLEROSIS
     Route: 048
     Dates: start: 20130530
  2. TECFIDERA [Suspect]
     Indication: MULTIPLE SCLEROSIS
     Route: 048
     Dates: start: 20130606, end: 20130609
  3. VITAMIN C [Concomitant]
     Indication: ROUTINE HEALTH MAINTENANCE
  4. COENZYME Q 10 [Concomitant]
     Indication: ROUTINE HEALTH MAINTENANCE

REACTIONS (9)
  - Heart rate abnormal [Not Recovered/Not Resolved]
  - Neuralgia [Not Recovered/Not Resolved]
  - Lymph node pain [Not Recovered/Not Resolved]
  - Spinal pain [Not Recovered/Not Resolved]
  - Blister [Not Recovered/Not Resolved]
  - Burning sensation [Unknown]
  - Herpes virus infection [Recovered/Resolved]
  - Pain [Unknown]
  - Gastric disorder [Unknown]
